FAERS Safety Report 6232447-5 (Version None)
Quarter: 2009Q2

REPORT INFORMATION
  Report Type: 
  Country: None (occurrence: None)
  Receive Date: 20090617
  Receipt Date: 20090608
  Transmission Date: 20091009
  Serious: Yes (Other)
  Sender: FDA-Public Use
  Company Number: US-ROCHE-636913

PATIENT
  Sex: Female

DRUGS (5)
  1. BONIVA [Suspect]
     Indication: OSTEOPOROSIS
     Route: 048
  2. NEXIUM [Concomitant]
  3. ADVAIR HFA [Concomitant]
  4. FLONASE [Concomitant]
  5. FORTEO [Concomitant]

REACTIONS (2)
  - AVERSION [None]
  - STRESS FRACTURE [None]
